FAERS Safety Report 5221437-7 (Version None)
Quarter: 2007Q1

REPORT INFORMATION
  Report Type: 
  Country: None (occurrence: None)
  Receive Date: 20070126
  Receipt Date: 20070111
  Transmission Date: 20070707
  Serious: Yes (Hospitalization)
  Sender: FDA-Public Use
  Company Number: US-SHR-US-2006-037003

PATIENT
  Age: 45 Year
  Sex: Male
  Weight: 78.005 kg

DRUGS (4)
  1. BETASERON [Suspect]
     Indication: RELAPSING-REMITTING MULTIPLE SCLEROSIS
     Dates: start: 20051004, end: 20060501
  2. OXYCONTIN [Concomitant]
     Indication: BACK PAIN
     Dosage: 40 MG, 2X/DAY
     Route: 048
  3. PERCOCET [Concomitant]
     Dosage: UNK, AS REQ'D
     Route: 048
  4. SKELAXIN [Concomitant]

REACTIONS (5)
  - BACK PAIN [None]
  - HEADACHE [None]
  - HILAR LYMPHADENOPATHY [None]
  - INTERSTITIAL LUNG DISEASE [None]
  - SARCOIDOSIS [None]
